FAERS Safety Report 12838939 (Version 1)
Quarter: 2016Q4

REPORT INFORMATION
  Report Type: Spontaneous
  Country: US (occurrence: US)
  Receive Date: 20161011
  Receipt Date: 20161011
  Transmission Date: 20170207
  Serious: Yes (Hospitalization, Other)
  Sender: FDA-Public Use
  Company Number: None

PATIENT
  Age: 61 Year
  Sex: Female
  Weight: 99.79 kg

DRUGS (6)
  1. VITAMIN B12 [Concomitant]
     Active Substance: CYANOCOBALAMIN
  2. SYNTHROID [Concomitant]
     Active Substance: LEVOTHYROXINE SODIUM
  3. CYMBALTA [Suspect]
     Active Substance: DULOXETINE HYDROCHLORIDE
     Indication: NEURALGIA
     Dosage: 30 MG + 160 MG    1 30 MG  1 AILY  BY MOUTH
     Route: 048
     Dates: start: 20160728, end: 20160930
  4. BENCORT [Concomitant]
     Active Substance: BENZOYL PEROXIDE\HYDROCORTISONE
  5. CYMBALTA [Suspect]
     Active Substance: DULOXETINE HYDROCHLORIDE
     Indication: NECK PAIN
     Dosage: 30 MG + 160 MG    1 30 MG  1 AILY  BY MOUTH
     Route: 048
     Dates: start: 20160728, end: 20160930
  6. CYMBALTA [Suspect]
     Active Substance: DULOXETINE HYDROCHLORIDE
     Indication: PAIN IN EXTREMITY
     Dosage: 30 MG + 160 MG    1 30 MG  1 AILY  BY MOUTH
     Route: 048
     Dates: start: 20160728, end: 20160930

REACTIONS (11)
  - Vertigo [None]
  - Paraesthesia [None]
  - Choking [None]
  - Diarrhoea [None]
  - Vomiting [None]
  - Eructation [None]
  - Retching [None]
  - Tremor [None]
  - Dizziness [None]
  - Constipation [None]
  - Withdrawal syndrome [None]

NARRATIVE: CASE EVENT DATE: 20160912
